FAERS Safety Report 21082634 (Version 1)
Quarter: 2022Q3

REPORT INFORMATION
  Report Type: Spontaneous
  Country: CN (occurrence: CN)
  Receive Date: 20220714
  Receipt Date: 20220714
  Transmission Date: 20221027
  Serious: Yes (Other)
  Sender: FDA-Public Use
  Company Number: None

PATIENT
  Age: 50 Year
  Sex: Female
  Weight: 54 kg

DRUGS (8)
  1. CYCLOPHOSPHAMIDE [Suspect]
     Active Substance: CYCLOPHOSPHAMIDE
     Indication: Breast cancer female
     Dosage: UNK, QD, 1-2 CYCLES OF CHEMOTHERAPY
     Route: 042
  2. CYCLOPHOSPHAMIDE [Suspect]
     Active Substance: CYCLOPHOSPHAMIDE
     Dosage: 900 MG, QD, CYCLOPHOSPHAMIDE (900 MG) + NS (45ML), 3RD CYCLE OF CHEMOTHERAPY
     Route: 042
     Dates: start: 20220512, end: 20220512
  3. SODIUM CHLORIDE [Suspect]
     Active Substance: SODIUM CHLORIDE
     Indication: Medication dilution
     Dosage: UNK, QD, CYCLOPHOSPHAMIDE + NS, 1-2 CYCLES OF CHEMOTHERAPY
     Route: 042
  4. SODIUM CHLORIDE [Suspect]
     Active Substance: SODIUM CHLORIDE
     Dosage: 45ML, QD, CYCLOPHOSPHAMIDE (900 MG) + NS (45ML), 3RD CHEMOTHERAPY CYCLE
     Route: 042
     Dates: start: 20220512, end: 20220512
  5. SODIUM CHLORIDE [Suspect]
     Active Substance: SODIUM CHLORIDE
     Dosage: UNK, QD, TAXOTERE + NS, 1-2 CYCLES OF CHEMOTHERAPY
     Route: 042
  6. SODIUM CHLORIDE [Suspect]
     Active Substance: SODIUM CHLORIDE
     Dosage: UNK, QD, TAXOTERE (114 MG) + NS (250ML), 3RD CHEMOTHERAPY CYCLE
     Route: 042
     Dates: start: 20220512, end: 20220512
  7. TAXOTERE [Suspect]
     Active Substance: DOCETAXEL
     Indication: Breast cancer female
     Dosage: UNK, QD, 1-2 CYCLES OF CHEMOTHERAPY, TAXOTERE + NS
     Route: 042
  8. TAXOTERE [Suspect]
     Active Substance: DOCETAXEL
     Dosage: 114 MG, QD, TAXOTERE (114 MG) + NS (250ML), 3RD CHEMOTHERAPY CYCLE
     Route: 042
     Dates: start: 20220512, end: 20220512

REACTIONS (2)
  - White blood cell count decreased [Recovered/Resolved]
  - Agranulocytosis [Recovered/Resolved]

NARRATIVE: CASE EVENT DATE: 20220519
